FAERS Safety Report 6750514-4 (Version None)
Quarter: 2010Q2

REPORT INFORMATION
  Report Type: 
  Country: None (occurrence: None)
  Receive Date: 20100528
  Receipt Date: 20100528
  Transmission Date: 20101027
  Serious: No
  Sender: FDA-Public Use
  Company Number: None

PATIENT
  Age: 48 Year
  Sex: Female
  Weight: 99.7913 kg

DRUGS (1)
  1. OMEPRAZOLE [Suspect]
     Indication: GASTROOESOPHAGEAL REFLUX DISEASE
     Dosage: 1 CAPSULE TWICE DAILY PO
     Route: 048

REACTIONS (8)
  - FALL [None]
  - GRIP STRENGTH [None]
  - MOBILITY DECREASED [None]
  - MOVEMENT DISORDER [None]
  - PAIN [None]
  - RADIUS FRACTURE [None]
  - SCAR [None]
  - ULNA FRACTURE [None]
